FAERS Safety Report 13564504 (Version 3)
Quarter: 2017Q3

REPORT INFORMATION
  Report Type: Report from Study
  Country: CA (occurrence: CA)
  Receive Date: 20170519
  Receipt Date: 20170922
  Transmission Date: 20171127
  Serious: Yes (Other)
  Sender: FDA-Public Use
  Company Number: CA-BAYER-2017-090320

PATIENT
  Age: 78 Year
  Sex: Female

DRUGS (3)
  1. STIVARGA [Suspect]
     Active Substance: REGORAFENIB
     Indication: COLORECTAL CANCER METASTATIC
     Dosage: 160 MG, QD 21/28 DAYS
     Route: 048
     Dates: start: 20170506, end: 20170608
  2. FOLFOX [Concomitant]
     Active Substance: FLUOROURACIL\LEUCOVORIN CALCIUM\OXALIPLATIN
     Indication: COLON CANCER METASTATIC
  3. FOLFIRI [Concomitant]
     Active Substance: FLUOROURACIL\IRINOTECAN\LEUCOVORIN
     Indication: COLON CANCER METASTATIC

REACTIONS (10)
  - Hypoaesthesia [Not Recovered/Not Resolved]
  - Colorectal cancer metastatic [None]
  - Neuropathy peripheral [Not Recovered/Not Resolved]
  - Post-tussive vomiting [Unknown]
  - Pain in extremity [Recovered/Resolved]
  - Skin lesion [Recovering/Resolving]
  - Paraesthesia [Not Recovered/Not Resolved]
  - Productive cough [Unknown]
  - Erythema [Recovered/Resolved]
  - Fatigue [Not Recovered/Not Resolved]

NARRATIVE: CASE EVENT DATE: 201705
